FAERS Safety Report 11999264 (Version 1)
Quarter: 2016Q1

REPORT INFORMATION
  Report Type: Other
  Country: DE (occurrence: DE)
  Receive Date: 20160204
  Receipt Date: 20160204
  Transmission Date: 20160526
  Serious: Yes (Congenital Anomaly, Other)
  Sender: FDA-Public Use
  Company Number: DE-MACLEODS PHARMACEUTICALS US LTD-MAC2014002387

PATIENT

DRUGS (8)
  1. ASPIRIN. [Suspect]
     Active Substance: ASPIRIN
     Dosage: 40 MG, QD (0.-38.4. GESTATIONAL WEEK)
     Route: 064
     Dates: end: 20150615
  2. TAVOR (LORAZEPAM) [Concomitant]
     Active Substance: LORAZEPAM
     Indication: ANXIETY DISORDER
     Dosage: ON DEMAND (0.0 - 38.4. GESTATIONAL WEEK)
     Route: 064
     Dates: start: 20140918, end: 20150615
  3. ASPIRIN. [Suspect]
     Active Substance: ASPIRIN
     Dosage: UNK
  4. LYRICA [Concomitant]
     Active Substance: PREGABALIN
     Indication: ANXIETY DISORDER
     Dosage: 300 MG, QD (0.0 - 7. GESTATIONAL WEEK)
     Route: 064
  5. ASPIRIN. [Suspect]
     Active Substance: ASPIRIN
     Indication: ANXIETY DISORDER
     Dosage: 240 MG, QD ( 0.0 - 38.4. GESTATIONAL WEEK)
     Route: 064
     Dates: start: 20140918
  6. FEMAFORM NATAL [Concomitant]
     Indication: PROPHYLAXIS OF NEURAL TUBE DEFECT
     Dosage: UNK, (5.0 -38.5. GESTATIAONAL WEEK)
     Route: 064
  7. ESCITALOPRAM [Suspect]
     Active Substance: ESCITALOPRAM OXALATE
     Indication: DEPRESSION
     Dosage: 10 MG ,QD ( 0.0- 38.4. GESTATIONAL WEEK)
     Route: 064
     Dates: start: 20140918, end: 20150615
  8. METAMIZOL [Concomitant]
     Active Substance: METAMIZOLE SODIUM
     Indication: HEADACHE
     Dosage: 500 MG, QD / ON DEMAND (0.0 -38.4. GESTATIONAL WEEK)
     Route: 064
     Dates: start: 20140918, end: 20150615

REACTIONS (3)
  - Hypospadias [Not Recovered/Not Resolved]
  - Small for dates baby [Not Recovered/Not Resolved]
  - Foetal exposure during pregnancy [Unknown]

NARRATIVE: CASE EVENT DATE: 20150615
